FAERS Safety Report 4798918-3 (Version None)
Quarter: 2005Q4

REPORT INFORMATION
  Report Type: 
  Country: None (occurrence: None)
  Receive Date: 20051014
  Receipt Date: 20050930
  Transmission Date: 20060501
  Serious: Yes (Hospitalization)
  Sender: FDA-Public Use
  Company Number: FRWYE022730SEP05

PATIENT
  Age: 50 Year
  Sex: Male

DRUGS (1)
  1. ENBREL [Suspect]
     Indication: RHEUMATOID ARTHRITIS
     Route: 058
     Dates: start: 20050215, end: 20050803

REACTIONS (4)
  - ASTHENIA [None]
  - BURSITIS [None]
  - ERYSIPELAS [None]
  - LIMB INJURY [None]
